FAERS Safety Report 13469790 (Version 1)
Quarter: 2017Q2

REPORT INFORMATION
  Report Type: Spontaneous
  Country: GB (occurrence: GB)
  Receive Date: 20170422
  Receipt Date: 20170422
  Transmission Date: 20170830
  Serious: Yes (Other)
  Sender: FDA-Public Use
  Company Number: GB-ACCORD-050467

PATIENT
  Age: 57 Year
  Sex: Male
  Weight: 89 kg

DRUGS (5)
  1. AMITRIPTYLINE [Suspect]
     Active Substance: AMITRIPTYLINE
     Indication: PRODUCT USED FOR UNKNOWN INDICATION
     Dates: start: 20170331
  2. LANSOPRAZOLE. [Concomitant]
     Active Substance: LANSOPRAZOLE
     Dosage: IN THE MORNING.
     Dates: start: 20170325
  3. MELOXICAM. [Concomitant]
     Active Substance: MELOXICAM
     Dates: start: 20170325
  4. PARACETAMOL [Concomitant]
     Active Substance: ACETAMINOPHEN
     Dosage: TAKE 1 OR 2 TABLETS UP TO 4 TIMES A DAY.
     Dates: start: 20170228, end: 20170302
  5. AMLODIPINE [Concomitant]
     Active Substance: AMLODIPINE BESYLATE
     Dosage: EACH MORNING.
     Dates: start: 20170331

REACTIONS (1)
  - Ventricular extrasystoles [Unknown]

NARRATIVE: CASE EVENT DATE: 20170331
